FAERS Safety Report 21685326 (Version 1)
Quarter: 2022Q4

REPORT INFORMATION
  Report Type: Spontaneous
  Country: JP (occurrence: JP)
  Receive Date: 20221206
  Receipt Date: 20221206
  Transmission Date: 20230112
  Serious: Yes (Death, Hospitalization)
  Sender: FDA-Public Use
  Company Number: JP-STRIDES ARCOLAB LIMITED-2022SP016228

PATIENT
  Age: 5 Decade
  Sex: Male

DRUGS (27)
  1. METHOTREXATE [Suspect]
     Active Substance: METHOTREXATE
     Indication: Rheumatoid arthritis
     Dosage: UNK
     Route: 065
     Dates: start: 1998
  2. PREDNISOLONE [Suspect]
     Active Substance: PREDNISOLONE
     Indication: Diffuse large B-cell lymphoma
     Dosage: UNK
     Route: 065
     Dates: start: 1998
  3. PREDNISOLONE [Suspect]
     Active Substance: PREDNISOLONE
     Indication: Rheumatoid arthritis
     Dosage: UNK (TAPERING)
     Route: 065
  4. PREDNISOLONE [Suspect]
     Active Substance: PREDNISOLONE
     Indication: Haemophagocytic lymphohistiocytosis
     Dosage: 10 MILLIGRAM PER DAY (AT THE INITIAL ADMISSION)
     Route: 065
  5. PREDNISOLONE [Suspect]
     Active Substance: PREDNISOLONE
     Dosage: UNK (AS A PART OF R-CHOP REGIMEN)
     Route: 065
  6. PREDNISOLONE [Suspect]
     Active Substance: PREDNISOLONE
     Dosage: UNK (FOR 3 DAYS)
     Route: 065
  7. PREDNISOLONE [Suspect]
     Active Substance: PREDNISOLONE
     Dosage: UNK (INJECTION)
     Route: 037
  8. DEXAMETHASONE [Suspect]
     Active Substance: DEXAMETHASONE
     Indication: Diffuse large B-cell lymphoma
     Dosage: UNK (AS A PART OF CHASER REGIMEN)
     Route: 065
     Dates: start: 2012
  9. DEXAMETHASONE [Suspect]
     Active Substance: DEXAMETHASONE
     Indication: Haemophagocytic lymphohistiocytosis
  10. ETOPOSIDE [Suspect]
     Active Substance: ETOPOSIDE
     Indication: Diffuse large B-cell lymphoma
     Dosage: UNK (AS A PART OF CHASER REGIMEN)
     Route: 065
     Dates: start: 2012
  11. ETOPOSIDE [Suspect]
     Active Substance: ETOPOSIDE
     Indication: Haemophagocytic lymphohistiocytosis
  12. OXYCODONE [Suspect]
     Active Substance: OXYCODONE
     Indication: Headache
     Dosage: UNK, INJECTION
     Route: 065
     Dates: start: 2012
  13. CYCLOPHOSPHAMIDE [Suspect]
     Active Substance: CYCLOPHOSPHAMIDE
     Indication: Diffuse large B-cell lymphoma
     Dosage: UNK (FOR DYSPNOEA)
     Route: 065
     Dates: start: 201101
  14. CYCLOPHOSPHAMIDE [Suspect]
     Active Substance: CYCLOPHOSPHAMIDE
     Indication: Dyspnoea
     Dosage: 50 MILLIGRAM PER 2 DAY (AT THE INITIAL ADMISSION)
     Route: 065
  15. CYCLOPHOSPHAMIDE [Suspect]
     Active Substance: CYCLOPHOSPHAMIDE
     Indication: Haemophagocytic lymphohistiocytosis
     Dosage: UNK (AS A PART OF R-CHOP THERAPY)
     Route: 065
  16. CYCLOPHOSPHAMIDE [Suspect]
     Active Substance: CYCLOPHOSPHAMIDE
     Dosage: UNK (AS A PART OF CHASER REGIMEN)
     Route: 065
     Dates: start: 2012
  17. RITUXIMAB [Suspect]
     Active Substance: RITUXIMAB
     Indication: Diffuse large B-cell lymphoma
     Dosage: UNK (AS A PART OF R-CHOP REGIMEN)
     Route: 065
  18. RITUXIMAB [Suspect]
     Active Substance: RITUXIMAB
     Indication: Haemophagocytic lymphohistiocytosis
     Dosage: UNK (AS A PART OF CHASER REGIMEN)
     Route: 065
     Dates: start: 2012
  19. CYTARABINE [Suspect]
     Active Substance: CYTARABINE
     Indication: Diffuse large B-cell lymphoma
     Dosage: UNK (AS A PART OF CHASER REGIMEN)
     Route: 065
     Dates: start: 2012
  20. CYTARABINE [Suspect]
     Active Substance: CYTARABINE
     Indication: Haemophagocytic lymphohistiocytosis
     Dosage: UNK (HIGH-DOSE CYTARABINE FOR 3 DAYS)
     Route: 065
     Dates: start: 2012
  21. CYTARABINE [Suspect]
     Active Substance: CYTARABINE
     Dosage: UNK, INJECTION
     Route: 037
     Dates: start: 2012
  22. METHYLPREDNISOLONE [Suspect]
     Active Substance: METHYLPREDNISOLONE
     Indication: Dyspnoea
     Dosage: 500 MILLIGRAM PER DAY
     Route: 065
  23. TACROLIMUS [Suspect]
     Active Substance: TACROLIMUS
     Indication: Arthralgia
     Dosage: UNK
     Route: 065
     Dates: start: 201107
  24. DOXORUBICIN [Suspect]
     Active Substance: DOXORUBICIN
     Indication: Diffuse large B-cell lymphoma
     Dosage: UNK (AS A PART OF R-CHOP REGIMEN)
     Route: 065
  25. DOXORUBICIN [Suspect]
     Active Substance: DOXORUBICIN
     Indication: Haemophagocytic lymphohistiocytosis
  26. VINCRISTINE [Suspect]
     Active Substance: VINCRISTINE
     Indication: Diffuse large B-cell lymphoma
     Dosage: UNK (AS A PERT OF R-CHOP REGIMEN)
     Route: 065
  27. VINCRISTINE [Suspect]
     Active Substance: VINCRISTINE
     Indication: Haemophagocytic lymphohistiocytosis

REACTIONS (9)
  - Respiratory failure [Fatal]
  - Pneumonia [Fatal]
  - Interstitial lung disease [Fatal]
  - Diffuse large B-cell lymphoma [Fatal]
  - Haemophagocytic lymphohistiocytosis [Fatal]
  - Drug ineffective [Fatal]
  - Shock [Unknown]
  - Epstein-Barr virus infection [Unknown]
  - Off label use [Unknown]

NARRATIVE: CASE EVENT DATE: 20101101
